FAERS Safety Report 21265636 (Version 1)
Quarter: 2022Q3

REPORT INFORMATION
  Report Type: Spontaneous
  Country: NA (occurrence: NA)
  Receive Date: 20220829
  Receipt Date: 20220829
  Transmission Date: 20221027
  Serious: Yes (Other)
  Sender: FDA-Public Use
  Company Number: NA-MYLANLABS-2022M1089621

PATIENT
  Age: 48 Year
  Sex: Female

DRUGS (13)
  1. TENOFOVIR DISOPROXIL [Suspect]
     Active Substance: TENOFOVIR DISOPROXIL
     Indication: HIV test positive
     Dosage: UNK, AS A PART OF TENOFOVIR-DISOPROXIL-FUMARATE, LAMIVUDINE AND EFAVIRENZ REGIMEN
     Route: 065
     Dates: start: 200906, end: 201404
  2. TENOFOVIR DISOPROXIL [Suspect]
     Active Substance: TENOFOVIR DISOPROXIL
     Dosage: UNK,AS A PART OF TENOFOVIR-DISOPROXIL-FUMARATE, ZIDOVUDINE, LAMIVUDINE...
     Route: 065
     Dates: start: 201404, end: 201807
  3. INDINAVIR [Suspect]
     Active Substance: INDINAVIR
     Indication: HIV test positive
     Dosage: UNK, AS A PART OF INDINAVIR, RITONAVIR AND EFAVIRENZ REGIMEN
     Route: 065
     Dates: start: 200510, end: 200710
  4. RITONAVIR [Suspect]
     Active Substance: RITONAVIR
     Indication: HIV test positive
     Dosage: UNK, AS A PART OF INDINAVIR, RITONAVIR AND EFAVIRENZ REGIMEN
     Route: 065
     Dates: start: 200510, end: 200710
  5. EFAVIRENZ [Suspect]
     Active Substance: EFAVIRENZ
     Indication: HIV test positive
     Dosage: UNK, AS A PART OF INDINAVIR, RITONAVIR AND EFAVIRENZ REGIMEN
     Route: 065
     Dates: start: 200510, end: 200710
  6. EFAVIRENZ [Suspect]
     Active Substance: EFAVIRENZ
     Dosage: UNK, AS A PART OF TENOFOVIR-DISOPROXIL-FUMARATE, LAMIVUDINE AND EFAVIRENZ REGIMEN
     Route: 065
     Dates: start: 200906, end: 201404
  7. ZIDOVUDINE [Suspect]
     Active Substance: ZIDOVUDINE
     Indication: HIV test positive
     Dosage: UNK, AS A PART OF ZIDOVUDINE, LAMIVUDINE AND LOPINAVIR/RITONAVIR REGIMEN
     Route: 065
     Dates: start: 200710, end: 200906
  8. ZIDOVUDINE [Suspect]
     Active Substance: ZIDOVUDINE
     Dosage: UNK, AS A PART OF TENOFOVIR-DISOPROXIL-FUMARATE, ZIDOVUDINE, LAMIVUDINE....
     Route: 065
     Dates: start: 201404, end: 201807
  9. LAMIVUDINE [Suspect]
     Active Substance: LAMIVUDINE
     Indication: HIV test positive
     Dosage: UNK, AS A PART OF ZIDOVUDINE, LAMIVUDINE AND LOPINAVIR/RITONAVIR REGIMEN.
     Route: 065
     Dates: start: 200710, end: 200906
  10. LAMIVUDINE [Suspect]
     Active Substance: LAMIVUDINE
     Dosage: UNK, AS A PART OF TENOFOVIR-DISOPROXIL-FUMARATE, LAMIVUDINE AND EFAVIRENZ
     Route: 065
     Dates: start: 200906, end: 201404
  11. LAMIVUDINE [Suspect]
     Active Substance: LAMIVUDINE
     Dosage: UNK,AS A PART OF TENOFOVIR-DISOPROXIL-FUMARATE, ZIDOVUDINE, LAMIVUDINE....
     Route: 065
     Dates: start: 201404, end: 201807
  12. LOPINAVIR\RITONAVIR [Suspect]
     Active Substance: LOPINAVIR\RITONAVIR
     Indication: HIV test positive
     Dosage: UNK, AS A PART OF ZIDOVUDINE, LAMIVUDINE AND LOPINAVIR/RITONAVIR REGIMEN
     Route: 065
     Dates: start: 200710, end: 200906
  13. LOPINAVIR\RITONAVIR [Suspect]
     Active Substance: LOPINAVIR\RITONAVIR
     Dosage: UNK, AS A PART OF ZIDOVUDINE, LAMIVUDINE AND LOPINAVIR/RITONAVIR REGIMEN
     Route: 065
     Dates: start: 201404, end: 201807

REACTIONS (1)
  - Drug resistance [Unknown]
